FAERS Safety Report 6883283-8 (Version None)
Quarter: 2010Q3

REPORT INFORMATION
  Report Type: 
  Country: None (occurrence: None)
  Receive Date: 20100727
  Receipt Date: 20070717
  Transmission Date: 20110219
  Serious: No
  Sender: FDA-Public Use
  Company Number: US-PFIZER INC-2007035653

PATIENT
  Age: 76 Year
  Sex: Female
  Weight: 85.454 kg

DRUGS (6)
  1. CELEBREX [Suspect]
     Indication: OSTEOARTHRITIS
  2. HYZAAR [Concomitant]
  3. OMEPRAZOLE [Concomitant]
  4. ZOCOR [Concomitant]
  5. ACETYLSALICYLIC ACID SRT [Concomitant]
  6. SYNTHROID [Concomitant]

REACTIONS (2)
  - PRURITUS [None]
  - SWELLING FACE [None]
